FAERS Safety Report 7109815-2 (Version None)
Quarter: 2010Q4

REPORT INFORMATION
  Report Type: 
  Country: None (occurrence: None)
  Receive Date: 20101118
  Receipt Date: 20101105
  Transmission Date: 20110411
  Serious: Yes (Other)
  Sender: FDA-Public Use
  Company Number: US-SHIRE-SPV1-2010-01936

PATIENT
  Sex: Male
  Weight: 86.168 kg

DRUGS (3)
  1. VYVANSE [Suspect]
     Indication: ATTENTION DEFICIT/HYPERACTIVITY DISORDER
     Dosage: 30 MG, 1X/DAY:QD
     Route: 048
     Dates: start: 20101015, end: 20101022
  2. VYVANSE [Suspect]
     Dosage: 60 MG, 1X/DAY:QD
     Route: 048
     Dates: start: 20101104
  3. ALBUTEROL [Concomitant]
     Indication: ASTHMA
     Dosage: UNK MG, AS REQ'D
     Route: 055
     Dates: start: 20000101

REACTIONS (16)
  - ANXIETY [None]
  - DEPRESSED MOOD [None]
  - DIZZINESS [None]
  - DRUG EFFECT DECREASED [None]
  - DYSPNOEA [None]
  - GAIT DISTURBANCE [None]
  - INSOMNIA [None]
  - LOSS OF CONSCIOUSNESS [None]
  - MOTOR DYSFUNCTION [None]
  - OBSESSIVE THOUGHTS [None]
  - OFF LABEL USE [None]
  - PYREXIA [None]
  - SENSORY DISTURBANCE [None]
  - SOCIAL PROBLEM [None]
  - SPEECH DISORDER [None]
  - VIRAL INFECTION [None]
